FAERS Safety Report 17874915 (Version 1)
Quarter: 2020Q2

REPORT INFORMATION
  Report Type: Spontaneous
  Country: US (occurrence: US)
  Receive Date: 20200609
  Receipt Date: 20200609
  Transmission Date: 20200714
  Serious: No
  Sender: FDA-Public Use
  Company Number: US-PFIZER INC-2018125832

PATIENT
  Age: 74 Year
  Sex: Female
  Weight: 85.73 kg

DRUGS (2)
  1. CADUET [Suspect]
     Active Substance: AMLODIPINE BESYLATE\ATORVASTATIN CALCIUM
     Indication: BLOOD PRESSURE INCREASED
     Dosage: 1 DF, 1X/DAY (STRENGTH: 10/20MG)/(DIRECTIONS: 1 PO ONCE A DAY)
     Route: 048
  2. CADUET [Suspect]
     Active Substance: AMLODIPINE BESYLATE\ATORVASTATIN CALCIUM
     Indication: BLOOD CHOLESTEROL INCREASED
     Dosage: 1 DF, 1X/DAY (STRENGTH: 5/20MG)/(DIRECTIONS: 1 PO ONCE A DAY)
     Route: 048

REACTIONS (2)
  - Glycosylated haemoglobin increased [Unknown]
  - Product dispensing error [Unknown]

NARRATIVE: CASE EVENT DATE: 202005
